FAERS Safety Report 5126592-5 (Version None)
Quarter: 2006Q4

REPORT INFORMATION
  Report Type: 
  Country: None (occurrence: None)
  Receive Date: 20061012
  Receipt Date: 20061012
  Transmission Date: 20070319
  Serious: Yes (Other)
  Sender: FDA-Public Use
  Company Number: None

PATIENT
  Sex: Female
  Weight: 74.8435 kg

DRUGS (1)
  1. BONIVA [Suspect]
     Indication: OSTEOPENIA
     Dosage: 1 PILL ONCE MONTHLY PO  3 OR 4 MONTHS
     Route: 048
     Dates: start: 20060501, end: 20060901

REACTIONS (5)
  - ARTHRALGIA [None]
  - BONE PAIN [None]
  - MUSCULOSKELETAL CHEST PAIN [None]
  - MYALGIA [None]
  - TENDON DISORDER [None]
